FAERS Safety Report 6170899-X (Version None)
Quarter: 2009Q2

REPORT INFORMATION
  Report Type: 
  Country: None (occurrence: None)
  Receive Date: 20090427
  Receipt Date: 20090415
  Transmission Date: 20091009
  Serious: Yes (Congenital Anomaly)
  Sender: FDA-Public Use
  Company Number: 2009AL002335

PATIENT
  Sex: Female

DRUGS (1)
  1. FLUOXETINE [Suspect]
     Indication: MATERNAL DRUGS AFFECTING FOETUS
     Dosage: 20 MG;QD; TRPL
     Route: 064
     Dates: start: 20070401, end: 20070801

REACTIONS (3)
  - CONGENITAL ANOMALY [None]
  - MATERNAL DRUGS AFFECTING FOETUS [None]
  - POSTERIOR SEGMENT OF EYE ANOMALY CONGENITAL [None]
